FAERS Safety Report 6271741-9 (Version None)
Quarter: 2009Q3

REPORT INFORMATION
  Report Type: 
  Country: None (occurrence: None)
  Receive Date: 20090717
  Receipt Date: 20090708
  Transmission Date: 20100115
  Serious: Yes (Other)
  Sender: FDA-Public Use
  Company Number: CH-TEVA-201564ISR

PATIENT
  Sex: Female
  Weight: 2.4 kg

DRUGS (13)
  1. CISPLATIN [Suspect]
     Indication: CERVIX CARCINOMA
     Route: 064
     Dates: start: 20090113, end: 20090205
  2. PACLITAXEL [Suspect]
     Indication: CERVIX CARCINOMA
     Route: 064
     Dates: start: 20090113, end: 20090205
  3. CLEMASTINE FUMARATE [Suspect]
     Indication: PROPHYLAXIS
     Route: 064
     Dates: start: 20090113, end: 20090205
  4. ONDANSETRON [Suspect]
     Indication: PROPHYLAXIS
     Route: 064
     Dates: start: 20090113, end: 20090205
  5. ONDANSETRON [Suspect]
     Route: 064
  6. RANITIDINE HYDROCHLORIDE [Suspect]
     Indication: PROPHYLAXIS
     Route: 064
     Dates: start: 20090113, end: 20090205
  7. DEXAMETHASONE [Suspect]
     Route: 064
     Dates: start: 20090112, end: 20090205
  8. BETAMETHASONE [Suspect]
     Route: 064
     Dates: start: 20090112, end: 20090113
  9. METHYLPREDNISOLONE SODIUM SUCCINATE [Suspect]
     Indication: PROPHYLAXIS
     Route: 064
     Dates: start: 20090113, end: 20090205
  10. METOCLOPRAMIDE [Suspect]
     Indication: NAUSEA
     Route: 064
  11. METOCLOPRAMIDE [Suspect]
     Indication: VOMITING
  12. FUROSEMIDE [Concomitant]
  13. LORAZEPAM [Concomitant]

REACTIONS (6)
  - DRUG EXPOSURE DURING PREGNANCY [None]
  - HYPOGLYCAEMIA NEONATAL [None]
  - HYPOTHERMIA [None]
  - JAUNDICE NEONATAL [None]
  - NEONATAL RESPIRATORY DISTRESS SYNDROME [None]
  - PREMATURE BABY [None]
